FAERS Safety Report 7898456-5 (Version None)
Quarter: 2011Q4

REPORT INFORMATION
  Report Type: 
  Country: None (occurrence: None)
  Receive Date: 20111107
  Receipt Date: 20111026
  Transmission Date: 20120403
  Serious: Yes (Hospitalization)
  Sender: FDA-Public Use
  Company Number: US-BAYER-2010-006389

PATIENT
  Age: 26 Year
  Sex: Female
  Weight: 54.875 kg

DRUGS (4)
  1. DROSPIRENONE AND ETHINYL ESTRADIOL [Suspect]
     Indication: MENSTRUAL CYCLE MANAGEMENT
     Dosage: UNK
     Dates: start: 20090401, end: 20091101
  2. NAPROXEN [Concomitant]
     Dosage: UNK
     Route: 048
     Dates: start: 20060101, end: 20090101
  3. YASMIN [Suspect]
     Indication: ACNE
     Dosage: UNK
     Dates: start: 20040101, end: 20090101
  4. IBUPROFEN [Concomitant]
     Dosage: UNK UNK, PRN
     Route: 048
     Dates: start: 20030101, end: 20100101

REACTIONS (5)
  - CHOLECYSTITIS [None]
  - MIGRAINE [None]
  - PAIN [None]
  - PANCREATITIS [None]
  - CHOLELITHIASIS [None]
